FAERS Safety Report 8535510-9 (Version None)
Quarter: 2012Q3

REPORT INFORMATION
  Report Type: 
  Country: None (occurrence: None)
  Receive Date: 20120725
  Receipt Date: 20120713
  Transmission Date: 20120928
  Serious: Yes (Death, Hospitalization)
  Sender: FDA-Public Use
  Company Number: IT-009507513-1207ITA003287

PATIENT

DRUGS (5)
  1. VICTRELIS [Suspect]
     Indication: HEPATITIS C
     Dosage: UNK, QD
     Route: 048
     Dates: start: 20120521, end: 20120707
  2. PEG-INTRON [Suspect]
  3. REBETOL [Suspect]
     Indication: HEPATITIS C
     Dosage: 1200 MG, QD
     Route: 048
     Dates: start: 20120423, end: 20120707
  4. PEG-INTRON [Suspect]
     Indication: HEPATITIS C
     Dosage: 1200 MG, QW
     Route: 058
     Dates: start: 20120423, end: 20120702
  5. ASPIRIN [Concomitant]
     Indication: THROMBOSIS PROPHYLAXIS
     Dosage: 75 MG, QD

REACTIONS (4)
  - BRONCHOPNEUMONIA [None]
  - MULTI-ORGAN FAILURE [None]
  - RESPIRATORY ACIDOSIS [None]
  - PANCYTOPENIA [None]
